FAERS Safety Report 6705864-4 (Version None)
Quarter: 2010Q2

REPORT INFORMATION
  Report Type: 
  Country: None (occurrence: None)
  Receive Date: 20100503
  Receipt Date: 20100222
  Transmission Date: 20101027
  Serious: No
  Sender: FDA-Public Use
  Company Number: US-ASTRAZENECA-2010SE07681

PATIENT
  Age: 80 Year
  Sex: Female
  Weight: 54 kg

DRUGS (2)
  1. NEXIUM [Suspect]
     Route: 048
     Dates: start: 20090109
  2. GELNIQUE [Suspect]
     Indication: URINARY INCONTINENCE
     Route: 061
     Dates: start: 20090109

REACTIONS (1)
  - URINARY HESITATION [None]
